FAERS Safety Report 4467006-8 (Version None)
Quarter: 2004Q4

REPORT INFORMATION
  Report Type: 
  Country: None (occurrence: None)
  Receive Date: 20041006
  Receipt Date: 20040927
  Transmission Date: 20050328
  Serious: Yes (Hospitalization)
  Sender: FDA-Public Use
  Company Number: US-JNJFOC-20040904108

PATIENT
  Sex: Male

DRUGS (3)
  1. DURAGESIC [Suspect]
     Route: 062
  2. DURAGESIC [Suspect]
     Route: 062
  3. DURAGESIC [Suspect]
     Route: 062

REACTIONS (6)
  - BACK DISORDER [None]
  - BURNING SENSATION [None]
  - PAIN EXACERBATED [None]
  - POST PROCEDURAL PAIN [None]
  - THERAPEUTIC AGENT TOXICITY [None]
  - THERAPEUTIC RESPONSE DECREASED [None]
